FAERS Safety Report 6148519-X (Version None)
Quarter: 2009Q2

REPORT INFORMATION
  Report Type: 
  Country: None (occurrence: None)
  Receive Date: 20090406
  Receipt Date: 20090406
  Transmission Date: 20091009
  Serious: Yes (Life-Threatening, Hospitalization, Other)
  Sender: FDA-Public Use
  Company Number: None

PATIENT
  Age: 27 Year
  Sex: Male
  Weight: 81.1939 kg

DRUGS (1)
  1. RISPERDAL CONSTA [Suspect]
     Indication: ATTENTION DEFICIT/HYPERACTIVITY DISORDER
     Dosage: 37.5 MILLIGRAMS 2 WEEKS IM
     Route: 030
     Dates: start: 20050125, end: 20090325

REACTIONS (11)
  - ABSCESS [None]
  - ACCIDENTAL NEEDLE STICK [None]
  - BACK PAIN [None]
  - CARDIAC DISORDER [None]
  - FATIGUE [None]
  - GAIT DISTURBANCE [None]
  - MUSCULOSKELETAL STIFFNESS [None]
  - NAUSEA [None]
  - NERVOUSNESS [None]
  - PILONIDAL CYST [None]
  - TREMOR [None]
